FAERS Safety Report 7381042-3 (Version None)
Quarter: 2011Q1

REPORT INFORMATION
  Report Type: 
  Country: None (occurrence: None)
  Receive Date: 20110329
  Receipt Date: 20100407
  Transmission Date: 20110831
  Serious: No
  Sender: FDA-Public Use
  Company Number: US-AMGEN-KDL404328

PATIENT
  Sex: Female

DRUGS (8)
  1. ESTROGENS CONJUGATED [Concomitant]
     Dosage: UNK UNK, UNK
  2. ACETAMINOPHEN AND OXYCODONE HCL [Concomitant]
     Dosage: UNK UNK, PRN
  3. OXYCODONE HYDROCHLORIDE [Concomitant]
     Dosage: 10 MG, UNK
  4. ERGOCALCIFEROL [Concomitant]
     Dosage: UNK UNK, UNK
  5. SENSIPAR [Suspect]
     Indication: PRODUCT USED FOR UNKNOWN INDICATION
     Dosage: 60 MG, QD
     Route: 048
  6. LEVOTHYROXINE SODIUM [Concomitant]
     Dosage: UNK UNK, UNK
  7. WARFARIN SODIUM [Concomitant]
     Dosage: UNK UNK, UNK
  8. CELECOXIB [Concomitant]
     Dosage: UNK UNK, UNK

REACTIONS (1)
  - DYSGEUSIA [None]
